FAERS Safety Report 24773483 (Version 1)
Quarter: 2024Q4

REPORT INFORMATION
  Report Type: Spontaneous
  Country: RU (occurrence: RU)
  Receive Date: 20241225
  Receipt Date: 20241225
  Transmission Date: 20250114
  Serious: Yes (Other)
  Sender: TEVA
  Company Number: RU-TEVA-VS-3278503

PATIENT
  Age: 81 Year
  Sex: Female

DRUGS (3)
  1. CARVEDILOL [Suspect]
     Active Substance: CARVEDILOL
     Indication: Blood pressure measurement
     Dosage: TEVA, PACKAGING: 30 PIECES, 2 TIMES A DAY. 12.5 MG DURING THE DAY AND 25 MG IN THE EVENING BEFORE...
     Route: 065
     Dates: end: 20241213
  2. CARVEDILOL [Suspect]
     Active Substance: CARVEDILOL
     Indication: Blood pressure measurement
     Dosage: TEVA, PACKAGING: 30 PIECES, 2 TIMES A DAY. 12.5 MG DURING THE DAY AND 25 MG IN THE EVENING BEFORE...
     Route: 065
     Dates: end: 20241213
  3. ELIQUIS [Concomitant]
     Active Substance: APIXABAN
     Indication: Product used for unknown indication
     Dosage: ON AN ONGOING BASIS FOR 5 YEARS
     Route: 065

REACTIONS (4)
  - Blood pressure increased [Recovered/Resolved]
  - Drug ineffective [Unknown]
  - Expired product administered [Unknown]
  - Product counterfeit [Unknown]

NARRATIVE: CASE EVENT DATE: 20241213
